FAERS Safety Report 7427579-X (Version None)
Quarter: 2011Q2

REPORT INFORMATION
  Report Type: 
  Country: None (occurrence: None)
  Receive Date: 20110420
  Receipt Date: 20110406
  Transmission Date: 20111010
  Serious: Yes (Hospitalization)
  Sender: FDA-Public Use
  Company Number: KR-GENENTECH-278273

PATIENT
  Sex: Male
  Weight: 71.6 kg

DRUGS (70)
  1. BLINDED DOXORUBICIN [Suspect]
     Dosage: UNK
     Route: 042
     Dates: start: 20090218
  2. CYCLOPHOSPHAMIDE [Suspect]
     Dosage: UNK
     Route: 042
     Dates: start: 20090304
  3. VINCRISTINE [Suspect]
     Dosage: 2 MG, UNK
     Route: 042
     Dates: start: 20090304
  4. METRONIDAZOLE [Concomitant]
     Indication: PRODUCT USED FOR UNKNOWN INDICATION
  5. BLINDED BEVACIZUMAB [Suspect]
     Dosage: UNK
     Route: 042
     Dates: start: 20090128, end: 20090201
  6. BLINDED VINCRISTINE [Suspect]
     Dosage: UNK
     Route: 042
     Dates: start: 20090128, end: 20090201
  7. BLINDED BEVACIZUMAB [Suspect]
     Dosage: UNK
     Route: 042
     Dates: start: 20090218
  8. PREDNISONE TAB [Suspect]
     Dosage: UNK
     Route: 042
     Dates: start: 20090218
  9. DOXORUBICIN [Suspect]
     Dosage: UNK
     Route: 042
     Dates: start: 20090128, end: 20090201
  10. DOXORUBICIN [Suspect]
     Dosage: UNK
     Route: 042
     Dates: start: 20090408
  11. CYCLOPHOSPHAMIDE [Suspect]
     Dosage: 1388 MG, Q21D
     Route: 042
     Dates: start: 20081126, end: 20090128
  12. CYCLOPHOSPHAMIDE [Suspect]
     Dosage: 1388 MG, Q21D
     Route: 042
     Dates: start: 20090218
  13. VINCRISTINE [Suspect]
     Dosage: UNK
     Route: 042
     Dates: start: 20090128, end: 20090201
  14. ATENOLOL [Concomitant]
     Indication: PRODUCT USED FOR UNKNOWN INDICATION
     Dosage: UNK
     Dates: start: 20081031
  15. GLIMEPIRIDE [Concomitant]
     Indication: PRODUCT USED FOR UNKNOWN INDICATION
     Dosage: UNK
     Dates: start: 20090219
  16. BLINDED DOXORUBICIN [Suspect]
     Indication: DIFFUSE LARGE B-CELL LYMPHOMA
     Dosage: UNK
     Route: 042
     Dates: start: 20081002, end: 20081101
  17. BLINDED RITUXIMAB [Suspect]
     Indication: DIFFUSE LARGE B-CELL LYMPHOMA
     Dosage: UNK
     Route: 042
     Dates: start: 20081002, end: 20081101
  18. BLINDED VINCRISTINE [Suspect]
     Indication: DIFFUSE LARGE B-CELL LYMPHOMA
     Dosage: UNK
     Route: 042
     Dates: start: 20081002, end: 20081101
  19. BLINDED RITUXIMAB [Suspect]
     Dosage: UNK
     Route: 042
     Dates: start: 20090128, end: 20090201
  20. BLINDED RITUXIMAB [Suspect]
     Dosage: UNK
     Route: 042
     Dates: start: 20090218
  21. DOXORUBICIN [Suspect]
     Dosage: 93 MG, UNK
     Route: 042
     Dates: start: 20090218
  22. VINCRISTINE [Suspect]
     Indication: DIFFUSE LARGE B-CELL LYMPHOMA
     Dosage: 2 MG, Q21D
     Route: 042
     Dates: start: 20081002, end: 20081101
  23. FAMOTIDINE [Concomitant]
     Indication: PRODUCT USED FOR UNKNOWN INDICATION
     Dosage: UNK
     Dates: start: 20090308
  24. BLINDED BEVACIZUMAB [Suspect]
     Indication: DIFFUSE LARGE B-CELL LYMPHOMA
     Dosage: UNK
     Route: 042
     Dates: start: 20081002, end: 20081101
  25. BLINDED PLACEBO [Suspect]
     Dosage: UNK
     Route: 042
     Dates: start: 20081126, end: 20090128
  26. BLINDED VINCRISTINE [Suspect]
     Dosage: UNK
     Route: 042
     Dates: start: 20090218
  27. BLINDED BEVACIZUMAB [Suspect]
     Dosage: UNK
     Route: 042
     Dates: start: 20090304
  28. PREDNISONE TAB [Suspect]
     Dosage: UNK
     Route: 042
     Dates: start: 20090304
  29. RITUXAN [Suspect]
     Dosage: 694 MG, UNK
     Route: 042
     Dates: start: 20090218
  30. PREDNISOLONE [Suspect]
     Indication: DIFFUSE LARGE B-CELL LYMPHOMA
     Dosage: 60 MG, Q21D
     Route: 048
     Dates: start: 20081002, end: 20081105
  31. PREDNISOLONE [Suspect]
     Dosage: 50 MG, UNK
     Route: 048
     Dates: start: 20090304
  32. MOSAPRIDE CITRATE [Concomitant]
     Indication: PRODUCT USED FOR UNKNOWN INDICATION
     Dosage: UNK
     Dates: start: 20081031
  33. CYCLOPHOSPHAMIDE [Suspect]
     Indication: DIFFUSE LARGE B-CELL LYMPHOMA
     Dosage: UNK
     Route: 042
     Dates: start: 20081002, end: 20081101
  34. BLINDED PLACEBO [Suspect]
     Indication: DIFFUSE LARGE B-CELL LYMPHOMA
     Dosage: UNK
     Route: 042
     Dates: start: 20081002, end: 20081101
  35. PREDNISONE TAB [Suspect]
     Dosage: UNK
     Route: 042
     Dates: start: 20081126, end: 20090128
  36. PREDNISOLONE [Suspect]
     Dosage: 50 MG, UNK
     Route: 048
     Dates: start: 20090218
  37. BLINDED VINCRISTINE [Suspect]
     Dosage: UNK
     Route: 042
     Dates: start: 20081126, end: 20090128
  38. CYCLOPHOSPHAMIDE [Suspect]
     Dosage: UNK
     Route: 042
     Dates: start: 20090218
  39. BLINDED PLACEBO [Suspect]
     Dosage: UNK
     Route: 042
     Dates: start: 20090218
  40. BLINDED VINCRISTINE [Suspect]
     Dosage: UNK
     Route: 042
     Dates: start: 20090304
  41. RITUXAN [Suspect]
     Indication: DIFFUSE LARGE B-CELL LYMPHOMA
     Dosage: 594 MG, Q21D
     Route: 042
     Dates: start: 20081003, end: 20081101
  42. RITUXAN [Suspect]
     Dosage: 694 MG, Q21D
     Route: 042
     Dates: start: 20081126, end: 20090128
  43. RITUXAN [Suspect]
     Dosage: 694 MG, UNK
     Route: 042
     Dates: start: 20090304
  44. DOXORUBICIN [Suspect]
     Indication: DIFFUSE LARGE B-CELL LYMPHOMA
     Dosage: 93 MG, Q21D
     Route: 042
     Dates: start: 20081003, end: 20081101
  45. DOXORUBICIN [Suspect]
     Dosage: 93 MG, Q21D
     Route: 042
     Dates: start: 20081126, end: 20090128
  46. VINCRISTINE [Suspect]
     Dosage: 2 MG, Q21D
     Route: 042
     Dates: start: 20081126, end: 20090128
  47. VINCRISTINE [Suspect]
     Dosage: 2 MG, UNK
     Route: 042
     Dates: start: 20090218
  48. VINCRISTINE [Suspect]
     Dosage: UNK
     Route: 042
     Dates: start: 20090408
  49. PREDNISONE TAB [Suspect]
     Indication: DIFFUSE LARGE B-CELL LYMPHOMA
     Dosage: UNK
     Route: 042
     Dates: start: 20081002, end: 20081101
  50. CYCLOPHOSPHAMIDE [Suspect]
     Dosage: UNK
     Route: 042
     Dates: start: 20081126, end: 20090128
  51. BLINDED DOXORUBICIN [Suspect]
     Dosage: UNK
     Route: 042
     Dates: start: 20081126, end: 20090128
  52. CYCLOPHOSPHAMIDE [Suspect]
     Dosage: UNK
     Route: 042
     Dates: start: 20090128, end: 20090201
  53. BLINDED DOXORUBICIN [Suspect]
     Dosage: UNK
     Route: 042
     Dates: start: 20090128, end: 20090201
  54. PREDNISONE TAB [Suspect]
     Dosage: UNK
     Route: 042
     Dates: start: 20090128, end: 20090201
  55. BLINDED PLACEBO [Suspect]
     Dosage: UNK
     Route: 042
     Dates: start: 20090304
  56. CYCLOPHOSPHAMIDE [Suspect]
     Indication: DIFFUSE LARGE B-CELL LYMPHOMA
     Dosage: 1388 MG, Q21D
     Route: 042
     Dates: start: 20081002, end: 20081101
  57. CYCLOPHOSPHAMIDE [Suspect]
     Dosage: 1388 MG, Q21D
     Route: 042
     Dates: start: 20090304
  58. CYCLOPHOSPHAMIDE [Suspect]
     Dosage: UNK
     Route: 042
     Dates: start: 20090408
  59. PREDNISOLONE [Suspect]
     Dosage: UNK
     Route: 048
     Dates: start: 20090408
  60. MAGNESIUM OXIDE [Concomitant]
     Indication: PRODUCT USED FOR UNKNOWN INDICATION
     Dosage: UNK
     Dates: start: 20090220
  61. BLINDED BEVACIZUMAB [Suspect]
     Dosage: UNK
     Route: 042
     Dates: start: 20081126, end: 20090128
  62. BLINDED RITUXIMAB [Suspect]
     Dosage: UNK
     Route: 042
     Dates: start: 20081126, end: 20090128
  63. BLINDED PLACEBO [Suspect]
     Dosage: UNK
     Route: 042
     Dates: start: 20090128, end: 20090201
  64. BLINDED DOXORUBICIN [Suspect]
     Dosage: UNK
     Route: 042
     Dates: start: 20090304
  65. BLINDED RITUXIMAB [Suspect]
     Dosage: UNK
     Route: 042
     Dates: start: 20090304
  66. RITUXAN [Suspect]
     Dosage: UNK
     Dates: start: 20090128, end: 20090201
  67. RITUXAN [Suspect]
     Dosage: UNK
     Route: 042
     Dates: start: 20090408
  68. DOXORUBICIN [Suspect]
     Dosage: 93 MG, UNK
     Route: 042
     Dates: start: 20090304
  69. PREDNISOLONE [Suspect]
     Dosage: 60 MG, UNK
     Route: 048
     Dates: start: 20081126, end: 20090201
  70. PENNEL [Concomitant]
     Indication: PRODUCT USED FOR UNKNOWN INDICATION
     Dosage: UNK
     Dates: start: 20090218

REACTIONS (4)
  - ANAL ABSCESS [None]
  - ASPARTATE AMINOTRANSFERASE INCREASED [None]
  - ALANINE AMINOTRANSFERASE INCREASED [None]
  - FEBRILE NEUTROPENIA [None]
